FAERS Safety Report 8017292-2 (Version None)
Quarter: 2012Q1

REPORT INFORMATION
  Report Type: 
  Country: None (occurrence: None)
  Receive Date: 20120102
  Receipt Date: 20111222
  Transmission Date: 20120608
  Serious: Yes (Death)
  Sender: FDA-Public Use
  Company Number: JP-ALLERGAN-1116765US

PATIENT
  Age: 85 Year
  Sex: Male

DRUGS (1)
  1. BOTOX [Suspect]
     Indication: MUSCLE SPASMS
     Dosage: 300 IU, SINGLE
     Route: 030
     Dates: start: 20110914, end: 20110914

REACTIONS (5)
  - DRY SKIN [None]
  - CONDITION AGGRAVATED [None]
  - RASH [None]
  - ECZEMA [None]
  - SKIN EXFOLIATION [None]
